FAERS Safety Report 26190111 (Version 1)
Quarter: 2025Q4

REPORT INFORMATION
  Report Type: Spontaneous
  Country: CN (occurrence: CN)
  Receive Date: 20251223
  Receipt Date: 20251223
  Transmission Date: 20260117
  Serious: Yes (Hospitalization, Other)
  Sender: MERCK SHARP & DOHME LLC
  Company Number: CN-009507513-2362121

PATIENT
  Age: 74 Year
  Sex: Male
  Weight: 73 kg

DRUGS (1)
  1. KEYTRUDA [Suspect]
     Active Substance: PEMBROLIZUMAB
     Indication: Lung neoplasm malignant
     Route: 041
     Dates: start: 20250101, end: 20250701

REACTIONS (15)
  - Enteritis [Recovering/Resolving]
  - Mucosal erosion [Unknown]
  - Gastrointestinal mucosal disorder [Unknown]
  - Probiotic therapy [Unknown]
  - Gastrointestinal wall thickening [Unknown]
  - White blood cells stool positive [Unknown]
  - Weight decreased [Unknown]
  - Cryptitis [Unknown]
  - Abscess intestinal [Unknown]
  - Tissue infiltration [Unknown]
  - Faecal occult blood positive [Unknown]
  - Procalcitonin increased [Unknown]
  - Diarrhoea [Unknown]
  - Faecal calprotectin abnormal [Unknown]
  - Colitis [Unknown]

NARRATIVE: CASE EVENT DATE: 20250101
